FAERS Safety Report 6891779-8 (Version None)
Quarter: 2010Q3

REPORT INFORMATION
  Report Type: 
  Country: None (occurrence: None)
  Receive Date: 20100731
  Receipt Date: 20071017
  Transmission Date: 20110219
  Serious: No
  Sender: FDA-Public Use
  Company Number: US-PFIZER INC-2007087673

PATIENT
  Sex: Female

DRUGS (4)
  1. NORVASC [Suspect]
     Indication: CARDIAC DISORDER
  2. LIPITOR [Suspect]
     Indication: BLOOD CHOLESTEROL
  3. CORDARONE [Concomitant]
  4. WARFARIN SODIUM [Concomitant]
     Dates: start: 19950101

REACTIONS (1)
  - MYALGIA [None]
